FAERS Safety Report 5579122-8 (Version None)
Quarter: 2007Q4

REPORT INFORMATION
  Report Type: 
  Country: None (occurrence: None)
  Receive Date: 20071227
  Receipt Date: 20071227
  Transmission Date: 20080405
  Serious: Yes (Life-Threatening)
  Sender: FDA-Public Use
  Company Number: None

PATIENT

DRUGS (1)
  1. PIROXICAM [Suspect]

REACTIONS (9)
  - ANAEMIA [None]
  - COLITIS ULCERATIVE [None]
  - DIVERTICULITIS [None]
  - DOCUMENTED HYPERSENSITIVITY TO ADMINISTERED DRUG [None]
  - HAEMORRHAGE [None]
  - HAEMORRHOIDS [None]
  - HEADACHE [None]
  - PYREXIA [None]
  - SKIN DISORDER [None]
